FAERS Safety Report 9523640 (Version 1)
Quarter: 2013Q3

REPORT INFORMATION
  Report Type: Spontaneous
  Country: US (occurrence: US)
  Receive Date: 20130913
  Receipt Date: 20130913
  Transmission Date: 20140515
  Serious: Yes (Death, Life-Threatening, Hospitalization)
  Sender: FDA-Public Use
  Company Number: US-TARO-2013P1019337

PATIENT
  Sex: Female

DRUGS (3)
  1. PHENYTOIN [Suspect]
     Route: 042
     Dates: start: 2012
  2. PHENYTOIN [Suspect]
     Route: 048
     Dates: start: 20120412, end: 20120522
  3. UNSPECIFIED VARIOUS MEDICATIONS [Concomitant]

REACTIONS (9)
  - Hypersensitivity [Fatal]
  - Renal failure [Fatal]
  - Mental impairment [Fatal]
  - Unresponsive to stimuli [Fatal]
  - Haemorrhage [Fatal]
  - Skin exfoliation [Fatal]
  - Pain [Not Recovered/Not Resolved]
  - Fear [Not Recovered/Not Resolved]
  - Anxiety [Not Recovered/Not Resolved]
